FAERS Safety Report 9124031 (Version 1)
Quarter: 2013Q1

REPORT INFORMATION
  Report Type: Spontaneous
  Country: CA (occurrence: CA)
  Receive Date: 20130227
  Receipt Date: 20130227
  Transmission Date: 20140127
  Serious: Yes (Other)
  Sender: FDA-Public Use
  Company Number: CA-ROCHE-1193689

PATIENT
  Age: 88 Year
  Sex: Female
  Weight: 70 kg

DRUGS (7)
  1. TAMIFLU [Suspect]
     Indication: PRODUCT USED FOR UNKNOWN INDICATION
     Route: 048
  2. DILANTIN [Concomitant]
     Route: 065
  3. GABAPENTIN [Concomitant]
     Route: 065
  4. OMEPRAZOLE [Concomitant]
     Route: 065
  5. QUETIAPINA [Concomitant]
     Route: 065
  6. TRAZODONE [Concomitant]
     Route: 065
  7. PHENYTOIN [Concomitant]
     Route: 065

REACTIONS (5)
  - Confusional state [Unknown]
  - Dehydration [Unknown]
  - Dizziness [Unknown]
  - International normalised ratio increased [Unknown]
  - Lethargy [Unknown]
